FAERS Safety Report 7420396-6 (Version None)
Quarter: 2011Q2

REPORT INFORMATION
  Report Type: 
  Country: None (occurrence: None)
  Receive Date: 20110406
  Receipt Date: 20110302
  Transmission Date: 20111010
  Serious: Yes (Death, Hospitalization)
  Sender: FDA-Public Use
  Company Number: COL_08207_2011

PATIENT
  Age: 63 Year
  Sex: Male
  Weight: 68 kg

DRUGS (3)
  1. PENICILLIN NOS [Concomitant]
  2. CHLORHEXIDINE (CHLORHEXIDINE ORAL CLEANSER (UNSPECIFIED)) [Suspect]
     Indication: GINGIVAL INFECTION
     Dosage: ORAL
     Route: 048
     Dates: start: 20090918
  3. CHLORHEXIDINE (CHLORHEXIDINE ORAL CLEANSER (UNSPECIFIED)) [Suspect]
     Indication: ANTIBIOTIC PROPHYLAXIS
     Dosage: ORAL
     Route: 048
     Dates: start: 20090918

REACTIONS (2)
  - ANAPHYLACTIC SHOCK [None]
  - HYPOXIC-ISCHAEMIC ENCEPHALOPATHY [None]
